FAERS Safety Report 7519816-8 (Version None)
Quarter: 2011Q2

REPORT INFORMATION
  Report Type: 
  Country: None (occurrence: None)
  Receive Date: 20110524
  Receipt Date: 20110513
  Transmission Date: 20111010
  Serious: Yes (Hospitalization)
  Sender: FDA-Public Use
  Company Number: 2011GW000167

PATIENT
  Age: 60 Year
  Sex: Female

DRUGS (1)
  1. ZYCLARA [Suspect]
     Indication: ACTINIC KERATOSIS
     Dosage: 3/75 PCT; HS; TOP
     Route: 061
     Dates: start: 20110303, end: 20110101

REACTIONS (5)
  - URTICARIA [None]
  - BUNDLE BRANCH BLOCK [None]
  - NAUSEA [None]
  - ASTHENIA [None]
  - APPLICATION SITE SCAB [None]
